FAERS Safety Report 8808429 (Version 1)
Quarter: 2012Q4

REPORT INFORMATION
  Report Type: 
  Country: US (occurrence: US)
  Receive Date: 20120926
  Receipt Date: 20120926
  Transmission Date: 20130627
  Serious: No
  Sender: FDA-Public Use
  Company Number: US-PFIZER INC-2012237280

PATIENT
  Age: 49 Year
  Sex: Female
  Weight: 68.03 kg

DRUGS (1)
  1. LYRICA [Suspect]
     Indication: PERIPHERAL NERVE INJURY
     Dosage: 150 mg, 2x/day
     Route: 048
     Dates: start: 20120911, end: 201209

REACTIONS (1)
  - Increased appetite [Recovering/Resolving]
